FAERS Safety Report 23131382 (Version 1)
Quarter: 2023Q4

REPORT INFORMATION
  Report Type: Spontaneous
  Country: US (occurrence: None)
  Receive Date: 20231031
  Receipt Date: 20231031
  Transmission Date: 20240110
  Serious: No
  Sender: FDA-Public Use
  Company Number: None

PATIENT
  Age: 49 Year
  Sex: Female

DRUGS (1)
  1. HUMIRA [Suspect]
     Active Substance: ADALIMUMAB
     Indication: Crohn^s disease
     Dosage: FREQUENCY : AS DIRECTED;?
     Route: 058
     Dates: start: 202310

REACTIONS (6)
  - Nasopharyngitis [None]
  - SARS-CoV-2 test positive [None]
  - Therapy interrupted [None]
  - Headache [None]
  - Nausea [None]
  - Fatigue [None]
